APPROVED DRUG PRODUCT: SODIUM POLYSTYRENE SULFONATE
Active Ingredient: SODIUM POLYSTYRENE SULFONATE
Strength: 454GM/BOT
Dosage Form/Route: POWDER;ORAL, RECTAL
Application: A205727 | Product #001 | TE Code: AA
Applicant: AJENAT PHARMACEUTICALS LLC
Approved: Feb 23, 2016 | RLD: No | RS: No | Type: RX